FAERS Safety Report 8006328-0 (Version None)
Quarter: 2011Q4

REPORT INFORMATION
  Report Type: 
  Country: None (occurrence: None)
  Receive Date: 20111226
  Receipt Date: 20111220
  Transmission Date: 20120403
  Serious: Yes (Hospitalization)
  Sender: FDA-Public Use
  Company Number: PHHY2011SE110530

PATIENT
  Sex: Female
  Weight: 97 kg

DRUGS (4)
  1. PREDNISOLONE [Concomitant]
  2. ZOLEDRONOC ACID [Suspect]
     Indication: OSTEOPOROSIS
     Dosage: 1 MG, UNK
     Route: 042
  3. OMEPRAZOLE [Concomitant]
  4. NEUROBION [Concomitant]

REACTIONS (7)
  - FATIGUE [None]
  - GASTROENTERITIS NOROVIRUS [None]
  - DIARRHOEA [None]
  - PAIN [None]
  - INCORRECT DOSE ADMINISTERED [None]
  - MUSCULOSKELETAL STIFFNESS [None]
  - WEIGHT DECREASED [None]
